FAERS Safety Report 15684676 (Version 1)
Quarter: 2018Q4

REPORT INFORMATION
  Report Type: Spontaneous
  Country: US (occurrence: US)
  Receive Date: 20181204
  Receipt Date: 20181204
  Transmission Date: 20190205
  Serious: Yes (Hospitalization, Other)
  Sender: FDA-Public Use
  Company Number: US-IMPAX LABORATORIES, LLC-2018-IPXL-03940

PATIENT
  Age: 60 Year
  Sex: Male

DRUGS (1)
  1. METHYLTESTOSTERONE. [Suspect]
     Active Substance: METHYLTESTOSTERONE
     Indication: HYPOGONADISM MALE
     Dosage: 200 MILLIGRAM, EVERY 3WK
     Route: 030

REACTIONS (6)
  - Pleural effusion [Recovering/Resolving]
  - Pulmonary oedema [Recovering/Resolving]
  - Cardiomyopathy [Recovering/Resolving]
  - Respiratory failure [Recovering/Resolving]
  - Blood testosterone increased [Unknown]
  - Drug abuse [Unknown]
